FAERS Safety Report 7539656-3 (Version None)
Quarter: 2011Q2

REPORT INFORMATION
  Report Type: 
  Country: None (occurrence: None)
  Receive Date: 20110609
  Receipt Date: 20110609
  Transmission Date: 20111010
  Serious: Yes (Other)
  Sender: FDA-Public Use
  Company Number: None

PATIENT
  Age: 49 Year
  Sex: Female
  Weight: 64.8644 kg

DRUGS (1)
  1. CYCLOBENZAPRINE HCL [Suspect]
     Indication: MUSCLE SPASMS
     Dosage: ONE TABLET TWICE DAILY ONE DAILY
     Dates: start: 20110518, end: 20110525

REACTIONS (1)
  - HYPOAESTHESIA [None]
